FAERS Safety Report 8911118 (Version 1)
Quarter: 2012Q4

REPORT INFORMATION
  Report Type: 
  Country: US (occurrence: US)
  Receive Date: 20121116
  Receipt Date: 20121116
  Transmission Date: 20130627
  Serious: No
  Sender: FDA-Public Use
  Company Number: US-GLAXOSMITHKLINE-A0921144A

PATIENT
  Age: 65 Year
  Sex: Male

DRUGS (7)
  1. VOTRIENT [Suspect]
     Dosage: 200MG Twice per day
     Route: 048
  2. PROTONIX [Concomitant]
  3. NORVASC [Concomitant]
  4. SYNTHROID [Concomitant]
  5. LISINOPRIL [Concomitant]
  6. HYDROCHLOROTHIAZIDE [Concomitant]
  7. WARFARIN [Concomitant]

REACTIONS (3)
  - Muscle spasms [Unknown]
  - Hair colour changes [Unknown]
  - Diarrhoea [Unknown]
